FAERS Safety Report 17828526 (Version 1)
Quarter: 2020Q2

REPORT INFORMATION
  Report Type: Spontaneous
  Country: US (occurrence: US)
  Receive Date: 20200526
  Receipt Date: 20200526
  Transmission Date: 20200714
  Serious: No
  Sender: FDA-Public Use
  Company Number: None

PATIENT
  Age: 84 Year
  Sex: Female

DRUGS (1)
  1. JULUCA [Suspect]
     Active Substance: DOLUTEGRAVIR SODIUM\RILPIVIRINE HYDROCHLORIDE
     Dosage: ?          OTHER DOSE:50MG-25MG;?
     Route: 048
     Dates: start: 202004, end: 202005

REACTIONS (2)
  - Nausea [None]
  - Cough [None]

NARRATIVE: CASE EVENT DATE: 20200526
